FAERS Safety Report 5947675-3 (Version None)
Quarter: 2008Q4

REPORT INFORMATION
  Report Type: 
  Country: None (occurrence: None)
  Receive Date: 20081111
  Receipt Date: 20081104
  Transmission Date: 20090506
  Serious: Yes (Disabling)
  Sender: FDA-Public Use
  Company Number: GB-RANBAXY-2008RR-19102

PATIENT
  Age: 65 Year
  Sex: Female
  Weight: 62 kg

DRUGS (5)
  1. CO-AMILOFRUSE [Suspect]
     Dosage: UNK
     Route: 048
     Dates: start: 20020327
  2. ALISKIREN [Suspect]
     Indication: HYPERTENSION
     Dosage: 150 MG, UNK
     Route: 048
     Dates: start: 20081009, end: 20081012
  3. ASPIRIN [Concomitant]
     Indication: ANGINA PECTORIS
     Dosage: 75 MG, UNK
     Route: 048
     Dates: start: 20040517
  4. ATORVASTATIN CALCIUM [Concomitant]
     Indication: ANGINA PECTORIS
     Dosage: 20 MG, UNK
     Route: 048
     Dates: start: 20040607
  5. DOXAZOSIN MESYLATE [Concomitant]
     Indication: HYPERTENSION
     Dosage: 4 MG, UNK
     Route: 048
     Dates: start: 20020313

REACTIONS (3)
  - DRUG INTERACTION [None]
  - HYPOTENSION [None]
  - THIRST [None]
